FAERS Safety Report 20429010 (Version 2)
Quarter: 2022Q1

REPORT INFORMATION
  Report Type: Spontaneous
  Country: PL (occurrence: PL)
  Receive Date: 20220204
  Receipt Date: 20220204
  Transmission Date: 20220423
  Serious: Yes (Other)
  Sender: FDA-Public Use
  Company Number: PL-009507513-2202POL000842

PATIENT
  Age: 86 Year
  Sex: Female

DRUGS (1)
  1. PEMBROLIZUMAB [Suspect]
     Active Substance: PEMBROLIZUMAB
     Indication: Malignant melanoma
     Dosage: UNK
     Dates: start: 201707, end: 202107

REACTIONS (2)
  - Invasive lobular breast carcinoma [Unknown]
  - HER2 negative breast cancer [Unknown]

NARRATIVE: CASE EVENT DATE: 20200101
